FAERS Safety Report 10149094 (Version 1)
Quarter: 2014Q2

REPORT INFORMATION
  Report Type: Spontaneous
  Country: JP (occurrence: JP)
  Receive Date: 20140502
  Receipt Date: 20140502
  Transmission Date: 20141212
  Serious: Yes (Hospitalization)
  Sender: FDA-Public Use
  Company Number: JP-ROCHE-1391517

PATIENT
  Age: 52 Year
  Sex: Male
  Weight: 84 kg

DRUGS (5)
  1. PEGASYS [Suspect]
     Indication: CHRONIC HEPATITIS C
     Route: 058
     Dates: start: 20140225, end: 20140225
  2. COPEGUS [Suspect]
     Indication: CHRONIC HEPATITIS C
     Route: 048
     Dates: start: 20140225, end: 20140227
  3. ZYLORIC [Concomitant]
     Indication: HYPERURICAEMIA
     Route: 048
     Dates: start: 20091027
  4. CALONAL [Concomitant]
     Indication: PYREXIA
     Route: 048
     Dates: start: 20140226, end: 20140227
  5. SIMEPREVIR [Concomitant]

REACTIONS (5)
  - Convulsion [Recovered/Resolved]
  - Loss of consciousness [Recovered/Resolved]
  - Joint dislocation [Recovering/Resolving]
  - Upper limb fracture [Recovering/Resolving]
  - Fall [Unknown]
